FAERS Safety Report 5366349-3 (Version None)
Quarter: 2007Q2

REPORT INFORMATION
  Report Type: 
  Country: None (occurrence: None)
  Receive Date: 20070620
  Receipt Date: 20070620
  Transmission Date: 20071010
  Serious: Yes (Hospitalization)
  Sender: FDA-Public Use
  Company Number: None

PATIENT
  Age: 5 Year
  Sex: Female
  Weight: 21.7727 kg

DRUGS (1)
  1. CLONAZEPAM [Suspect]
     Indication: CONVULSION
     Dosage: 3 TIMES PER DAY PO
     Route: 048
     Dates: start: 20070614, end: 20070618

REACTIONS (3)
  - CONDITION AGGRAVATED [None]
  - CONVULSION [None]
  - INAPPROPRIATE SCHEDULE OF DRUG ADMINISTRATION [None]
